FAERS Safety Report 19442253 (Version 2)
Quarter: 2022Q1

REPORT INFORMATION
  Report Type: Spontaneous
  Country: US (occurrence: US)
  Receive Date: 20210621
  Receipt Date: 20220322
  Transmission Date: 20220423
  Serious: No
  Sender: FDA-Public Use
  Company Number: US-PFIZER INC-2021438558

PATIENT
  Age: 77 Year
  Sex: Male

DRUGS (3)
  1. METHYLPREDNISOLONE [Suspect]
     Active Substance: METHYLPREDNISOLONE
     Indication: Back pain
     Dosage: UNK
  2. IBUPROFEN [Concomitant]
     Active Substance: IBUPROFEN
  3. APIXABAN [Concomitant]
     Active Substance: APIXABAN

REACTIONS (7)
  - Drug ineffective [Unknown]
  - Constipation [Unknown]
  - Diarrhoea [Unknown]
  - Intentional product misuse [Unknown]
  - Anger [Unknown]
  - Condition aggravated [Unknown]
  - Feeling abnormal [Unknown]
